FAERS Safety Report 4977416-8 (Version None)
Quarter: 2006Q2

REPORT INFORMATION
  Report Type: 
  Country: None (occurrence: None)
  Receive Date: 20060413
  Receipt Date: 20060330
  Transmission Date: 20061013
  Serious: Yes (Hospitalization)
  Sender: FDA-Public Use
  Company Number: 2006-BP-03635RO

PATIENT
  Age: 38 Year
  Sex: Male

DRUGS (3)
  1. METHADONE HCL [Suspect]
     Indication: DRUG REHABILITATION
     Dosage: 200 MG DAILY
  2. CANNABIS (CANNABIS SATIVA) [Concomitant]
  3. BENZODIAZEPINES (BENZODIAZEPINE DERIVATIVES) [Concomitant]

REACTIONS (6)
  - BLOOD POTASSIUM DECREASED [None]
  - ELECTROCARDIOGRAM QT PROLONGED [None]
  - SYNCOPE [None]
  - TORSADE DE POINTES [None]
  - TOXICOLOGIC TEST ABNORMAL [None]
  - VENTRICULAR FIBRILLATION [None]
